FAERS Safety Report 24994039 (Version 3)
Quarter: 2025Q1

REPORT INFORMATION
  Report Type: Report from Study
  Country: US (occurrence: US)
  Receive Date: 20250221
  Receipt Date: 20250319
  Transmission Date: 20250408
  Serious: Yes (Other)
  Sender: ROCHE
  Company Number: US-ROCHE-10000208935

PATIENT
  Sex: Female
  Weight: 85.72 kg

DRUGS (16)
  1. VABYSMO [Suspect]
     Active Substance: FARICIMAB-SVOA
     Indication: Neovascular age-related macular degeneration
     Route: 050
     Dates: start: 2023, end: 2024
  2. VABYSMO [Suspect]
     Active Substance: FARICIMAB-SVOA
     Route: 050
     Dates: start: 2023
  3. VABYSMO [Suspect]
     Active Substance: FARICIMAB-SVOA
     Route: 050
  4. AVASTIN [Suspect]
     Active Substance: BEVACIZUMAB
     Indication: Neovascular age-related macular degeneration
     Dosage: 1.25 ML
     Route: 050
     Dates: start: 20250212
  5. AVASTIN [Suspect]
     Active Substance: BEVACIZUMAB
     Route: 050
  6. AVASTIN [Suspect]
     Active Substance: BEVACIZUMAB
     Route: 065
  7. OLMESARTAN [Concomitant]
     Active Substance: OLMESARTAN
     Indication: Blood pressure measurement
     Dosage: IN THE MORNING
     Route: 048
     Dates: start: 2024
  8. OLMESARTAN [Concomitant]
     Active Substance: OLMESARTAN
     Route: 048
     Dates: start: 2008, end: 2024
  9. OLMESARTAN [Concomitant]
     Active Substance: OLMESARTAN
     Route: 048
     Dates: start: 2024, end: 2024
  10. PROGESTERONE [Concomitant]
     Active Substance: PROGESTERONE
     Indication: Hot flush
     Route: 048
  11. ARMOUR THYROID [Concomitant]
     Active Substance: THYROID, PORCINE
     Route: 048
     Dates: start: 2018
  12. AMLODIPINE [Concomitant]
     Active Substance: AMLODIPINE BESYLATE
     Indication: Hypertension
     Route: 048
     Dates: start: 2008
  13. AMLODIPINE [Concomitant]
     Active Substance: AMLODIPINE BESYLATE
     Route: 048
     Dates: start: 2024, end: 202501
  14. AMLODIPINE [Concomitant]
     Active Substance: AMLODIPINE BESYLATE
     Route: 048
  15. ESTRADIOL [Concomitant]
     Active Substance: ESTRADIOL
     Indication: Hot flush
     Route: 062
  16. EYLEA [Concomitant]
     Active Substance: AFLIBERCEPT
     Indication: Neovascular age-related macular degeneration
     Route: 050
     Dates: start: 2017, end: 2023

REACTIONS (6)
  - Conjunctival haemorrhage [Unknown]
  - Ocular retrobulbar haemorrhage [Not Recovered/Not Resolved]
  - Hypotension [Not Recovered/Not Resolved]
  - Fatigue [Not Recovered/Not Resolved]
  - Off label use [Unknown]
  - Off label use [Unknown]
